FAERS Safety Report 13071414 (Version 1)
Quarter: 2016Q4

REPORT INFORMATION
  Report Type: Spontaneous
  Country: US (occurrence: US)
  Receive Date: 20161228
  Receipt Date: 20161228
  Transmission Date: 20170207
  Serious: Yes (Hospitalization)
  Sender: FDA-Public Use
  Company Number: None

PATIENT
  Age: 56 Year
  Sex: Male

DRUGS (1)
  1. CAPECITABINE 500MG TAB [Suspect]
     Active Substance: CAPECITABINE
     Indication: COLON CANCER
     Dosage: 2G BIDX14D THEN OFF 7D PO
     Route: 048
     Dates: start: 20160603

REACTIONS (2)
  - Swelling face [None]
  - Vein disorder [None]

NARRATIVE: CASE EVENT DATE: 20161223
